FAERS Safety Report 23230054 (Version 1)
Quarter: 2023Q4

REPORT INFORMATION
  Report Type: Spontaneous
  Country: US (occurrence: None)
  Receive Date: 20231123
  Receipt Date: 20231123
  Transmission Date: 20240110
  Serious: Yes (Other)
  Sender: FDA-Public Use
  Company Number: None

PATIENT
  Sex: Female

DRUGS (11)
  1. ACTEMRA [Suspect]
     Active Substance: TOCILIZUMAB
     Indication: Rheumatoid arthritis
     Route: 058
     Dates: start: 20180613
  2. ASPIRIN LOW TAB 81MG [Concomitant]
  3. CELECOXIB CAP [Concomitant]
  4. GABAPENTIN CAP [Concomitant]
  5. LANSOPRAZOLE CAP [Concomitant]
  6. OXYCODONE TAB [Concomitant]
  7. PREDNISONE [Concomitant]
     Active Substance: PREDNISONE
  8. PREDNISONE TAB [Concomitant]
  9. VALACYCLOVIR TAB [Concomitant]
  10. VITAMIN D CAP [Concomitant]
  11. VITAMIN D3 [Concomitant]

REACTIONS (4)
  - Knee arthroplasty [None]
  - Therapy interrupted [None]
  - Treatment delayed [None]
  - Loss of personal independence in daily activities [None]
